FAERS Safety Report 12349233 (Version 2)
Quarter: 2016Q2

REPORT INFORMATION
  Report Type: Spontaneous
  Country: ES (occurrence: ES)
  Receive Date: 20160509
  Receipt Date: 20160517
  Transmission Date: 20160815
  Serious: Yes (Other)
  Sender: FDA-Public Use
  Company Number: ES-AMGEN-ESPSP2015108475

PATIENT
  Age: 33 Year
  Sex: Male

DRUGS (4)
  1. INACID                             /00003801/ [Concomitant]
     Active Substance: INDOMETHACIN
     Indication: ANTIINFLAMMATORY THERAPY
     Dosage: 75 MG, 1X/DAY (ONE DF OF 75 MG EVERY 24 HOURS, AT NIGHTS)
  2. PAZITAL [Concomitant]
     Active Substance: ACETAMINOPHEN\TRAMADOL HYDROCHLORIDE
     Indication: PAIN
     Dosage: 1 DF, 1X/DAY (ONE DF OF 37.5/325 MG EVERY 24 HOURS, AT NIGHTS)
  3. ENBREL [Suspect]
     Active Substance: ETANERCEPT
     Indication: ANKYLOSING SPONDYLITIS
     Dosage: 50 MG, WEEKLY (ON WEDNESDAYS)
     Route: 058
     Dates: start: 20150923, end: 2016
  4. NOLOTIL                            /06276702/ [Concomitant]
     Indication: PAIN
     Dosage: 1 DF, 3X/DAY (ONE DF EVERY 8 HOURS)

REACTIONS (10)
  - Disease progression [Not Recovered/Not Resolved]
  - Uveitis [Not Recovered/Not Resolved]
  - Injection site reaction [Recovered/Resolved]
  - Injection site pruritus [Recovered/Resolved]
  - Drug ineffective [Not Recovered/Not Resolved]
  - Injection site erythema [Recovered/Resolved]
  - Ear pain [Recovering/Resolving]
  - Injection site haemorrhage [Recovered/Resolved]
  - Injection site induration [Recovered/Resolved]
  - Injection site warmth [Recovered/Resolved]

NARRATIVE: CASE EVENT DATE: 2015
